FAERS Safety Report 7190375-5 (Version None)
Quarter: 2010Q4

REPORT INFORMATION
  Report Type: 
  Country: None (occurrence: None)
  Receive Date: 20101223
  Receipt Date: 20101208
  Transmission Date: 20110411
  Serious: Yes (Hospitalization)
  Sender: FDA-Public Use
  Company Number: BR-JNJFOC-20101207514

PATIENT
  Age: 23 Month
  Sex: Male

DRUGS (2)
  1. MEBENDAZOLE [Suspect]
     Indication: ENTEROBIASIS
     Route: 065
  2. ZITHROMAX [Suspect]
     Indication: TONSILLITIS
     Route: 048

REACTIONS (2)
  - CONJUNCTIVITIS [None]
  - ORAL MUCOSAL ERUPTION [None]
